FAERS Safety Report 20887545 (Version 1)
Quarter: 2022Q2

REPORT INFORMATION
  Report Type: Spontaneous
  Country: US (occurrence: US)
  Receive Date: 20220528
  Receipt Date: 20220528
  Transmission Date: 20220721
  Serious: No
  Sender: FDA-Public Use
  Company Number: US-TEVA-2022-US-2034088

PATIENT

DRUGS (1)
  1. ADDERALL [Suspect]
     Active Substance: AMPHETAMINE ASPARTATE\AMPHETAMINE SULFATE\DEXTROAMPHETAMINE SACCHARATE\DEXTROAMPHETAMINE SULFATE
     Indication: Attention deficit hyperactivity disorder
     Route: 065

REACTIONS (13)
  - Attention deficit hyperactivity disorder [Unknown]
  - Drug ineffective [Unknown]
  - Irritability [Unknown]
  - Anger [Unknown]
  - Fatigue [Unknown]
  - Disturbance in attention [Unknown]
  - Aggression [Unknown]
  - Somnolence [Unknown]
  - Product taste abnormal [Unknown]
  - Depression [Unknown]
  - Crying [Unknown]
  - Head discomfort [Unknown]
  - Anxiety [Unknown]
